FAERS Safety Report 15488473 (Version 1)
Quarter: 2018Q4

REPORT INFORMATION
  Report Type: Spontaneous
  Country: US (occurrence: US)
  Receive Date: 20181011
  Receipt Date: 20181011
  Transmission Date: 20190205
  Serious: No
  Sender: FDA-Public Use
  Company Number: US-ABBVIE-18K-163-2481990-00

PATIENT
  Sex: Male

DRUGS (2)
  1. VENETOCLAX. [Suspect]
     Active Substance: VENETOCLAX
     Indication: T-CELL PROLYMPHOCYTIC LEUKAEMIA
     Dosage: STARTING PACK: WEEK1:20MG, WEEK2:50MG, WEEK3:100MG, WEEK4:200MG
     Route: 048
     Dates: start: 20180828, end: 20180903
  2. VENETOCLAX. [Suspect]
     Active Substance: VENETOCLAX
     Dosage: STARTING PACK: WEEK1:20MG, WEEK2:50MG, WEEK3:100MG, WEEK4:200MG
     Route: 048
     Dates: start: 20180904, end: 20180910

REACTIONS (1)
  - Intentional product use issue [Unknown]

NARRATIVE: CASE EVENT DATE: 2018
